FAERS Safety Report 7117587-0 (Version None)
Quarter: 2010Q4

REPORT INFORMATION
  Report Type: 
  Country: None (occurrence: None)
  Receive Date: 20101122
  Receipt Date: 20101112
  Transmission Date: 20110411
  Serious: Yes (Death, Other)
  Sender: FDA-Public Use
  Company Number: JP-AMGEN-KDC442649

PATIENT

DRUGS (27)
  1. PANITUMUMAB [Suspect]
     Indication: COLORECTAL CANCER
     Dosage: 6 MG/KG, Q2WK
     Route: 041
     Dates: start: 20100721, end: 20100818
  2. OXALIPLATIN [Concomitant]
     Indication: COLORECTAL CANCER
     Dosage: 85 MG, Q2WK
     Route: 041
     Dates: start: 20100721, end: 20100804
  3. OXALIPLATIN [Concomitant]
     Route: 041
     Dates: start: 20100721, end: 20100804
  4. FLUOROURACIL [Concomitant]
     Indication: COLORECTAL CANCER
     Dosage: UNK UNK, 2 TIMES/WK
     Dates: start: 20100721, end: 20100804
  5. FLUOROURACIL [Concomitant]
     Dosage: UNK UNK, UNK
     Route: 041
     Dates: start: 20100721
  6. FLUOROURACIL [Concomitant]
     Route: 040
     Dates: start: 20100721, end: 20100804
  7. FLUOROURACIL [Concomitant]
     Route: 041
     Dates: start: 20100721, end: 20100804
  8. CALCIUM LEVOFOLINATE [Concomitant]
     Indication: COLORECTAL CANCER
     Dosage: 100 MG, 2 TIMES/WK
     Route: 041
     Dates: start: 20100721, end: 20100804
  9. CALCIUM LEVOFOLINATE [Concomitant]
     Route: 041
     Dates: start: 20100721, end: 20100804
  10. HEPARIN [Concomitant]
     Route: 042
  11. SULPERAZON [Concomitant]
     Route: 042
  12. PRIMPERAN [Concomitant]
     Route: 042
  13. SERENACE [Concomitant]
     Route: 042
  14. FLURBIPROFEN [Concomitant]
     Route: 042
  15. PURSENNID [Concomitant]
     Route: 048
  16. KYTRIL [Concomitant]
     Route: 042
  17. GLYCEROL [Concomitant]
     Route: 042
  18. EMEND [Concomitant]
     Route: 048
  19. GASTER [Concomitant]
     Route: 048
  20. MINOCYCLINE HCL [Concomitant]
     Route: 048
  21. ULCERLMIN [Concomitant]
     Route: 048
  22. TEGRETOL [Concomitant]
     Route: 048
  23. MAGLAX [Concomitant]
     Route: 048
  24. URSO 250 [Concomitant]
     Route: 048
  25. NEOMALLERMIN [Concomitant]
     Route: 048
  26. HIRUDOID [Concomitant]
     Route: 062
  27. LEVOFLOXACIN [Concomitant]
     Route: 048

REACTIONS (9)
  - COLORECTAL CANCER [None]
  - CONVULSION [None]
  - DECREASED APPETITE [None]
  - DERMATITIS ACNEIFORM [None]
  - DRY SKIN [None]
  - FATIGUE [None]
  - MALIGNANT NEOPLASM PROGRESSION [None]
  - PRURITUS [None]
  - RASH [None]
